FAERS Safety Report 17653802 (Version 1)
Quarter: 2020Q2

REPORT INFORMATION
  Report Type: Spontaneous
  Country: GB (occurrence: GB)
  Receive Date: 20200409
  Receipt Date: 20200409
  Transmission Date: 20200713
  Serious: Yes (Other)
  Sender: FDA-Public Use
  Company Number: GB-ASTRAZENECA-2020SE46990

PATIENT

DRUGS (1)
  1. OMEPRAZOLE. [Suspect]
     Active Substance: OMEPRAZOLE
     Indication: PRODUCT USED FOR UNKNOWN INDICATION
     Route: 048

REACTIONS (10)
  - Macrocytosis [Unknown]
  - Ulna fracture [Unknown]
  - Sensory loss [Unknown]
  - Osteoporosis [Unknown]
  - Peripheral sensory neuropathy [Unknown]
  - Balance disorder [Unknown]
  - Vitamin B12 deficiency [Unknown]
  - Spinal compression fracture [Unknown]
  - Fall [Unknown]
  - Restless legs syndrome [Unknown]

NARRATIVE: CASE EVENT DATE: 2018
